FAERS Safety Report 16468757 (Version 1)
Quarter: 2019Q3

REPORT INFORMATION
  Report Type: Spontaneous
  Country: US (occurrence: US)
  Receive Date: 20190621
  Receipt Date: 20190621
  Transmission Date: 20191004
  Serious: Yes (Hospitalization)
  Sender: FDA-Public Use
  Company Number: None

PATIENT
  Age: 49 Year
  Sex: Female

DRUGS (14)
  1. LEVOTHYROXIN [Concomitant]
     Active Substance: LEVOTHYROXINE
     Dates: start: 20180412
  2. LEVEMIR [Concomitant]
     Active Substance: INSULIN DETEMIR
     Dates: start: 20190220
  3. LYRICA [Concomitant]
     Active Substance: PREGABALIN
     Dates: start: 20190520
  4. ALEVE [Concomitant]
     Active Substance: NAPROXEN SODIUM
     Dates: start: 20190620
  5. CLOPIDOGREL [Concomitant]
     Active Substance: CLOPIDOGREL BISULFATE
     Dates: start: 20190401
  6. VITAMIN D [Concomitant]
     Active Substance: VITAMIN D NOS
     Dates: start: 20190620
  7. LISINOPRIL. [Concomitant]
     Active Substance: LISINOPRIL
     Dates: start: 20190517
  8. GLATIRAMER [Suspect]
     Active Substance: GLATIRAMER
     Indication: MULTIPLE SCLEROSIS
     Dosage: ?          OTHER FREQUENCY:3 TIMES A WEEK;?
     Route: 058
     Dates: start: 20190116
  9. BENADRYL [Concomitant]
     Active Substance: DIPHENHYDRAMINE HYDROCHLORIDE
     Dates: start: 20190620
  10. BACLOFEN. [Concomitant]
     Active Substance: BACLOFEN
     Dates: start: 20190221
  11. AMLODIPINE [Concomitant]
     Active Substance: AMLODIPINE BESYLATE
     Dates: start: 20190207
  12. BUPROPION. [Concomitant]
     Active Substance: BUPROPION
     Dates: start: 20190413
  13. NOVOLOG [Concomitant]
     Active Substance: INSULIN ASPART
     Dates: start: 20190620
  14. ROSUVASTATIN. [Concomitant]
     Active Substance: ROSUVASTATIN
     Dates: start: 20190207

REACTIONS (1)
  - Multiple sclerosis relapse [None]
